FAERS Safety Report 8141598-X (Version None)
Quarter: 2012Q1

REPORT INFORMATION
  Report Type: 
  Country: None (occurrence: None)
  Receive Date: 20120103
  Receipt Date: 20111115
  Transmission Date: 20120608
  Serious: No
  Sender: FDA-Public Use
  Company Number: AE-2011-002593

PATIENT
  Age: 54 Year
  Sex: Female
  Weight: 74.3899 kg

DRUGS (6)
  1. PEGASYS [Concomitant]
  2. RIBAVIRIN [Concomitant]
  3. MULTIVITAMIN [Concomitant]
  4. ATARAX [Concomitant]
  5. INCIVEK [Suspect]
     Dosage: 2250 MG (750 MG,3 IN 1 D),ORAL
     Route: 048
     Dates: start: 20111021, end: 20111031
  6. ACETAMINOPHEN [Concomitant]

REACTIONS (4)
  - HAEMATOCHEZIA [None]
  - ANORECTAL DISCOMFORT [None]
  - PROCTALGIA [None]
  - HEADACHE [None]
